FAERS Safety Report 7949719-6 (Version None)
Quarter: 2011Q4

REPORT INFORMATION
  Report Type: 
  Country: None (occurrence: None)
  Receive Date: 20111130
  Receipt Date: 20111121
  Transmission Date: 20120403
  Serious: Yes (Hospitalization, Other)
  Sender: FDA-Public Use
  Company Number: PHHY2011JP80072

PATIENT
  Age: 75 Year
  Sex: Female

DRUGS (7)
  1. VOGLIBOSE [Concomitant]
  2. GLYBURIDE [Concomitant]
     Route: 048
  3. BUFORMIN HYDROCHLORIDE [Concomitant]
  4. ALFAROL [Concomitant]
  5. CONIEL [Concomitant]
  6. NEORAL [Suspect]
     Indication: MYELODYSPLASTIC SYNDROME
     Dosage: 220 MG, DAILY
     Route: 048
     Dates: start: 20100401
  7. GLAKAY [Concomitant]

REACTIONS (3)
  - FALL [None]
  - SUBDURAL HAEMATOMA [None]
  - HEAD INJURY [None]
